FAERS Safety Report 18765800 (Version 2)
Quarter: 2021Q1

REPORT INFORMATION
  Report Type: Report from Study
  Country: US (occurrence: US)
  Receive Date: 20210120
  Receipt Date: 20210212
  Transmission Date: 20210419
  Serious: Yes (Death, Hospitalization, Other)
  Sender: FDA-Public Use
  Company Number: US-GILEAD-2021-0513635

PATIENT
  Sex: Female
  Weight: 97.1 kg

DRUGS (8)
  1. FLUDARABINE [Concomitant]
     Active Substance: FLUDARABINE PHOSPHATE
     Indication: BONE MARROW CONDITIONING REGIMEN
     Dosage: UNK
     Dates: start: 202011
  2. ZOVIRAX [Concomitant]
     Active Substance: ACYCLOVIR
     Indication: CENTRAL NERVOUS SYSTEM INFECTION
  3. ACTIGALL [Concomitant]
     Active Substance: URSODIOL
  4. KTE?X19 [Suspect]
     Active Substance: AXICABTAGENE CILOLEUCEL
     Indication: ACUTE LYMPHOCYTIC LEUKAEMIA
     Dosage: UNK
     Route: 065
     Dates: start: 20201120
  5. CYCLOPHOSPHAMIDE. [Concomitant]
     Active Substance: CYCLOPHOSPHAMIDE
     Indication: BONE MARROW CONDITIONING REGIMEN
     Dosage: UNK
     Dates: start: 202011
  6. KEPPRA [Concomitant]
     Active Substance: LEVETIRACETAM
     Dosage: UNK
     Dates: start: 20201119
  7. ZOVIRAX [Concomitant]
     Active Substance: ACYCLOVIR
     Indication: SKIN INFECTION
  8. ZOVIRAX [Concomitant]
     Active Substance: ACYCLOVIR
     Indication: SOFT TISSUE INFECTION

REACTIONS (6)
  - Clostridium difficile colitis [Unknown]
  - Brain oedema [Fatal]
  - Immune effector cell-associated neurotoxicity syndrome [Recovered/Resolved]
  - Cytokine release syndrome [Recovered/Resolved]
  - Colitis [Unknown]
  - Cytopenia [Unknown]

NARRATIVE: CASE EVENT DATE: 20201124
